FAERS Safety Report 25357116 (Version 3)
Quarter: 2025Q2

REPORT INFORMATION
  Report Type: Spontaneous
  Country: SK (occurrence: SK)
  Receive Date: 20250526
  Receipt Date: 20250618
  Transmission Date: 20250717
  Serious: Yes (Hospitalization, Other)
  Sender: BAXTER
  Company Number: SK-EMA-DD-20250516-7482689-114543

PATIENT
  Age: 67 Year
  Sex: Male

DRUGS (11)
  1. CYCLOPHOSPHAMIDE [Suspect]
     Active Substance: CYCLOPHOSPHAMIDE
     Indication: Diffuse large B-cell lymphoma
     Route: 041
     Dates: start: 202211
  2. CYCLOPHOSPHAMIDE [Suspect]
     Active Substance: CYCLOPHOSPHAMIDE
     Indication: Prophylaxis
     Route: 037
  3. DOXORUBICIN [Suspect]
     Active Substance: DOXORUBICIN
     Indication: Diffuse large B-cell lymphoma
     Route: 041
     Dates: start: 202211
  4. DOXORUBICIN [Suspect]
     Active Substance: DOXORUBICIN
     Indication: Prophylaxis
     Route: 037
  5. ETOPOSIDE [Suspect]
     Active Substance: ETOPOSIDE
     Indication: Diffuse large B-cell lymphoma
     Route: 041
     Dates: start: 202211
  6. ETOPOSIDE [Suspect]
     Active Substance: ETOPOSIDE
     Indication: Prophylaxis
     Route: 037
  7. PREDNISONE [Suspect]
     Active Substance: PREDNISONE
     Indication: Diffuse large B-cell lymphoma
     Route: 041
     Dates: start: 202211
  8. PREDNISONE [Suspect]
     Active Substance: PREDNISONE
     Indication: Prophylaxis
     Route: 037
  9. RITUXIMAB [Suspect]
     Active Substance: RITUXIMAB
     Indication: Diffuse large B-cell lymphoma
     Route: 041
     Dates: start: 202211
  10. VINCRISTINE [Suspect]
     Active Substance: VINCRISTINE
     Indication: Diffuse large B-cell lymphoma
     Route: 041
     Dates: start: 202211
  11. VINCRISTINE [Suspect]
     Active Substance: VINCRISTINE
     Indication: Prophylaxis
     Route: 037

REACTIONS (17)
  - Cardiotoxicity [Unknown]
  - Atrial fibrillation [Unknown]
  - Disease progression [Unknown]
  - Performance status decreased [Unknown]
  - Weight decreased [Unknown]
  - Mobility decreased [Unknown]
  - Body mass index decreased [Unknown]
  - Diarrhoea [Unknown]
  - Pyrexia [Unknown]
  - Bradyphrenia [Unknown]
  - Sarcopenia [Unknown]
  - Dehydration [Unknown]
  - Oral candidiasis [Unknown]
  - Anaemia of chronic disease [Unknown]
  - Thrombocytopenia [Unknown]
  - Pancytopenia [Unknown]
  - Leukopenia [Unknown]
